FAERS Safety Report 19656921 (Version 1)
Quarter: 2021Q3

REPORT INFORMATION
  Report Type: Spontaneous
  Country: US (occurrence: US)
  Receive Date: 20210804
  Receipt Date: 20210804
  Transmission Date: 20211014
  Serious: Yes (Other)
  Sender: FDA-Public Use
  Company Number: None

PATIENT
  Age: 65 Year
  Sex: Female

DRUGS (9)
  1. IRINOTECAN [Suspect]
     Active Substance: IRINOTECAN
     Indication: PANCREATIC CARCINOMA
     Dosage: ?          OTHER FREQUENCY:Q14D;?
     Route: 042
     Dates: start: 20210610
  2. PALONOSETRON. [Concomitant]
     Active Substance: PALONOSETRON HYDROCHLORIDE
     Dates: start: 20210610
  3. FOSAPREPITANT [Concomitant]
     Active Substance: FOSAPREPITANT
     Dates: start: 20210610
  4. OXALIPLATIN. [Concomitant]
     Active Substance: OXALIPLATIN
     Dates: start: 20210610
  5. IRINOTECAN [Suspect]
     Active Substance: IRINOTECAN
     Indication: PANCREATIC CARCINOMA
     Dosage: ?          OTHER FREQUENCY:Q14D;?
     Route: 042
     Dates: start: 20210610
  6. LEUCOVORIN. [Concomitant]
     Active Substance: LEUCOVORIN
     Dates: start: 20210610
  7. DEXAMETHASONE IVPB [Concomitant]
     Dates: start: 20210610
  8. ATROPINE. [Concomitant]
     Active Substance: ATROPINE
     Dates: start: 20210610
  9. FLUOROURACIL. [Concomitant]
     Active Substance: FLUOROURACIL
     Dates: start: 20210610

REACTIONS (4)
  - Pharyngeal paraesthesia [None]
  - Nausea [None]
  - Oropharyngeal discomfort [None]
  - Paraesthesia [None]

NARRATIVE: CASE EVENT DATE: 20210708
